FAERS Safety Report 5637077-1 (Version None)
Quarter: 2008Q1

REPORT INFORMATION
  Report Type: 
  Country: None (occurrence: None)
  Receive Date: 20080225
  Receipt Date: 20070816
  Transmission Date: 20080703
  Serious: No
  Sender: FDA-Public Use
  Company Number: US-BRISTOL-MYERS SQUIBB COMPANY-13880422

PATIENT
  Age: 59 Year
  Sex: Female

DRUGS (5)
  1. GLUCOPHAGE [Suspect]
  2. EVISTA [Concomitant]
  3. LISINOPRIL [Concomitant]
  4. DITROPAN XL [Concomitant]
  5. GLIPIZIDE [Concomitant]

REACTIONS (1)
  - GASTRIC DISORDER [None]
